FAERS Safety Report 8894727 (Version 1)
Quarter: 2012Q4

REPORT INFORMATION
  Report Type: 
  Country: US (occurrence: US)
  Receive Date: 20121107
  Receipt Date: 20121107
  Transmission Date: 20130627
  Serious: No
  Sender: FDA-Public Use
  Company Number: US-AMGEN-USASP2011050208

PATIENT
  Age: 60 Year
  Sex: Female
  Weight: 74.38 kg

DRUGS (16)
  1. ENBREL [Suspect]
     Indication: PRODUCT USED FOR UNKNOWN INDICATION
     Dosage: 50 mg, qwk
  2. ETODOLAC [Concomitant]
     Dosage: 200 mg, UNK
  3. LISINOPRIL [Concomitant]
     Dosage: 5 mg, UNK
  4. HYDROCHLOROTH [Concomitant]
     Dosage: 12.5 mg, UNK
  5. SIMVASTATIN [Concomitant]
     Dosage: 10 mg, UNK
  6. METFORMIN [Concomitant]
     Dosage: 500 mg, UNK
  7. CITALOPRAM [Concomitant]
     Dosage: 10 mg, UNK
  8. ONE A DAY WOMEN^S [Concomitant]
  9. BILBERRY                           /01397601/ [Concomitant]
     Dosage: 100 mg, UNK
  10. FISH OIL [Concomitant]
  11. ASPIRIN [Concomitant]
     Dosage: 81 mg, UNK
  12. CALCIUM + VITAMIN D [Concomitant]
  13. EVISTA [Concomitant]
     Dosage: 60 mg, UNK
  14. TEMOVATE [Concomitant]
  15. ADVIL                              /00044201/ [Concomitant]
     Dosage: 200 mg, UNK
  16. BACTRIM [Concomitant]
     Dosage: 400 mg, UNK

REACTIONS (2)
  - Fatigue [Unknown]
  - Urinary tract infection [Unknown]
